FAERS Safety Report 25327338 (Version 1)
Quarter: 2025Q2

REPORT INFORMATION
  Report Type: Spontaneous
  Country: US (occurrence: US)
  Receive Date: 20250517
  Receipt Date: 20250517
  Transmission Date: 20250717
  Serious: Yes (Hospitalization)
  Sender: GRAVITI PHARMACEUTICALS PRIVATE LIMITED
  Company Number: US-GRAVITIPHARMA-GRA-2505-US-LIT-0271

PATIENT
  Age: 26 Year
  Sex: Male

DRUGS (11)
  1. BACLOFEN [Suspect]
     Active Substance: BACLOFEN
     Indication: Tachycardia
     Route: 065
  2. BACLOFEN [Suspect]
     Active Substance: BACLOFEN
     Indication: Tremor
  3. BACLOFEN [Suspect]
     Active Substance: BACLOFEN
     Indication: Paranoia
  4. BACLOFEN [Suspect]
     Active Substance: BACLOFEN
     Indication: Agitation
  5. CLONIDINE [Concomitant]
     Active Substance: CLONIDINE
     Indication: Agitation
     Route: 065
  6. OLANZAPINE [Concomitant]
     Active Substance: OLANZAPINE
     Indication: Agitation
     Route: 065
  7. DIAZEPAM [Concomitant]
     Active Substance: DIAZEPAM
     Indication: Product used for unknown indication
     Route: 065
  8. DIAZEPAM [Concomitant]
     Active Substance: DIAZEPAM
     Route: 042
  9. DIAZEPAM [Concomitant]
     Active Substance: DIAZEPAM
     Route: 042
  10. DIAZEPAM [Concomitant]
     Active Substance: DIAZEPAM
     Route: 065
  11. DIAZEPAM [Concomitant]
     Active Substance: DIAZEPAM
     Route: 065

REACTIONS (1)
  - Drug ineffective [Unknown]
